FAERS Safety Report 7408284-2 (Version None)
Quarter: 2011Q2

REPORT INFORMATION
  Report Type: 
  Country: None (occurrence: None)
  Receive Date: 20110412
  Receipt Date: 20110331
  Transmission Date: 20111010
  Serious: Yes (Other)
  Sender: FDA-Public Use
  Company Number: US-JNJFOC-20080705419

PATIENT
  Sex: Female
  Weight: 84.37 kg

DRUGS (3)
  1. CATAPRES [Concomitant]
     Indication: HYPERTENSION
     Route: 048
  2. DURAGESIC [Suspect]
     Indication: BACK PAIN
     Route: 062
  3. VICODIN [Concomitant]
     Indication: BREAKTHROUGH PAIN
     Route: 048

REACTIONS (12)
  - APPLICATION SITE PRURITUS [None]
  - HYPERTENSION [None]
  - APPLICATION SITE PAIN [None]
  - APPLICATION SITE RASH [None]
  - WEIGHT DECREASED [None]
  - WITHDRAWAL SYNDROME [None]
  - PRODUCT QUALITY ISSUE [None]
  - INAPPROPRIATE SCHEDULE OF DRUG ADMINISTRATION [None]
  - SLEEP APNOEA SYNDROME [None]
  - DRUG DOSE OMISSION [None]
  - DRUG ADMINISTERED AT INAPPROPRIATE SITE [None]
  - THERAPEUTIC RESPONSE DELAYED [None]
